FAERS Safety Report 12139589 (Version 1)
Quarter: 2016Q1

REPORT INFORMATION
  Report Type: Report from Study
  Country: CA (occurrence: CA)
  Receive Date: 20160303
  Receipt Date: 20160303
  Transmission Date: 20160526
  Serious: Yes (Hospitalization, Other)
  Sender: FDA-Public Use
  Company Number: CA-AMGEN-CANSL2016024725

PATIENT
  Age: 69 Year
  Sex: Female

DRUGS (9)
  1. DOCUSATE SODIUM. [Concomitant]
     Active Substance: DOCUSATE SODIUM
  2. MAGNESIUM [Concomitant]
     Active Substance: MAGNESIUM
  3. CALCIUM [Concomitant]
     Active Substance: CALCIUM
  4. DEXILANT [Concomitant]
     Active Substance: DEXLANSOPRAZOLE
  5. ELAVIL [Concomitant]
     Active Substance: AMITRIPTYLINE HYDROCHLORIDE
  6. ATENOLOL. [Concomitant]
     Active Substance: ATENOLOL
  7. LAX-A-DAY [Concomitant]
  8. PROLIA [Suspect]
     Active Substance: DENOSUMAB
     Indication: PRODUCT USED FOR UNKNOWN INDICATION
     Dosage: 60 MG/ML, UNK
     Route: 058
     Dates: start: 20140317
  9. CELEBREX [Concomitant]
     Active Substance: CELECOXIB

REACTIONS (6)
  - Spinal fracture [Unknown]
  - Pain in extremity [Unknown]
  - Fall [Unknown]
  - Insomnia [Unknown]
  - Muscle spasms [Unknown]
  - Joint injury [Unknown]
